FAERS Safety Report 24922060 (Version 1)
Quarter: 2025Q1

REPORT INFORMATION
  Report Type: Other
  Country: PT (occurrence: PT)
  Receive Date: 20250204
  Receipt Date: 20250204
  Transmission Date: 20250408
  Serious: Yes (Death)
  Sender: B BRAUN
  Company Number: PT-B.Braun Medical Inc.-2170377

PATIENT
  Age: 90 Year
  Sex: Male

DRUGS (1)
  1. MEROPENEM [Suspect]
     Active Substance: MEROPENEM
     Indication: Infection

REACTIONS (1)
  - Drug ineffective [Fatal]
